FAERS Safety Report 21267321 (Version 1)
Quarter: 2022Q3

REPORT INFORMATION
  Report Type: Spontaneous
  Country: IT (occurrence: IT)
  Receive Date: 20220829
  Receipt Date: 20220829
  Transmission Date: 20221027
  Serious: Yes (Hospitalization, Other)
  Sender: FDA-Public Use
  Company Number: None

PATIENT
  Age: 43 Year
  Sex: Female
  Weight: 45 kg

DRUGS (5)
  1. VEKLURY [Suspect]
     Active Substance: REMDESIVIR
     Indication: COVID-19 pneumonia
     Dosage: 200 MG EV 1 VOLTA DIE
     Route: 042
     Dates: start: 20220407, end: 20220407
  2. DOXICICLINA MK [Concomitant]
     Indication: Pneumonitis
     Dosage: 100 MG X 2
     Route: 048
     Dates: start: 20220407, end: 20220407
  3. CEFTRIAXONE [Concomitant]
     Active Substance: CEFTRIAXONE
     Indication: Pneumonitis
     Dosage: 2 GR EV 1 VOLTA DIE
     Route: 042
     Dates: start: 20220407, end: 20220407
  4. ENOXAPARIN SODIUM [Concomitant]
     Active Substance: ENOXAPARIN SODIUM
     Indication: Pneumonitis
     Dosage: 4000 UI SC 1 VOLTA DIE
     Route: 058
     Dates: start: 20220407, end: 20220407
  5. DEXAMETHASONE [Concomitant]
     Active Substance: DEXAMETHASONE
     Indication: Pneumonitis
     Dosage: 6 MG EV 1 VOLTA DIE
     Route: 042
     Dates: start: 20220407, end: 20220407

REACTIONS (2)
  - Hepatitis [Recovered/Resolved]
  - Transaminases increased [Recovered/Resolved]

NARRATIVE: CASE EVENT DATE: 20220408
